FAERS Safety Report 9368947 (Version 2)
Quarter: 2013Q3

REPORT INFORMATION
  Report Type: Report from Study
  Country: NZ (occurrence: NZ)
  Receive Date: 20130626
  Receipt Date: 20130703
  Transmission Date: 20140515
  Serious: Yes (Hospitalization)
  Sender: FDA-Public Use
  Company Number: NZ-ROCHE-1238741

PATIENT
  Age: 47 Year
  Sex: Male
  Weight: 75 kg

DRUGS (11)
  1. TRASTUZUMAB [Suspect]
     Indication: GASTRIC CANCER
     Dosage: LOADING DOSE:585 MG
     Route: 042
     Dates: start: 20130613
  2. TRASTUZUMAB [Suspect]
     Dosage: MAINTAINENCE DOSE
     Route: 042
  3. CAPECITABINE [Suspect]
     Indication: GASTRIC CANCER
     Dosage: MOST RECENT DOSE PRIOR TO AE ONSET : 17/JUN/2013, TOTAL LAST DOSE 1500 MG.
     Route: 048
     Dates: start: 20130614
  4. CISPLATIN [Suspect]
     Indication: GASTRIC CANCER
     Route: 042
     Dates: start: 20130613
  5. ENSURE [Concomitant]
     Indication: WEIGHT DECREASED
     Route: 065
     Dates: start: 20130604
  6. PARACETAMOL [Concomitant]
     Indication: BACK PAIN
     Route: 065
     Dates: start: 20130604
  7. MORPHINE ELIXIR [Concomitant]
     Indication: BACK PAIN
     Route: 065
     Dates: start: 20130604, end: 20130613
  8. METOCLOPRAMIDE [Concomitant]
     Indication: NAUSEA
     Route: 065
     Dates: start: 20130604, end: 20130612
  9. OMEPRAZOLE [Concomitant]
     Route: 065
     Dates: start: 20130513
  10. DOMPERIDONE [Concomitant]
     Indication: NAUSEA
     Route: 065
     Dates: start: 20130612
  11. DEXAMETHASONE [Concomitant]
     Indication: PROPHYLAXIS OF NAUSEA AND VOMITING
     Route: 065
     Dates: start: 20130612, end: 20130616

REACTIONS (1)
  - Constipation [Recovered/Resolved]
